FAERS Safety Report 13763696 (Version 1)
Quarter: 2017Q3

REPORT INFORMATION
  Report Type: Spontaneous
  Country: NL (occurrence: NL)
  Receive Date: 20170718
  Receipt Date: 20170718
  Transmission Date: 20171127
  Serious: Yes (Hospitalization)
  Sender: FDA-Public Use
  Company Number: PHHY2017NL103855

PATIENT

DRUGS (3)
  1. PEGVISOMANT [Concomitant]
     Active Substance: PEGVISOMANT
     Dosage: DOSE REDUCED TO 50%
     Route: 065
  2. PASIREOTIDE LAR [Suspect]
     Active Substance: PASIREOTIDE
     Indication: ACROMEGALY
     Dosage: 60 MG, UNK
     Route: 065
  3. PEGVISOMANT [Concomitant]
     Active Substance: PEGVISOMANT
     Indication: ACROMEGALY
     Dosage: UNK, QW, FOR }= 6 MONTHS
     Route: 065

REACTIONS (1)
  - Hyperglycaemia [Unknown]
